FAERS Safety Report 22628689 (Version 4)
Quarter: 2025Q2

REPORT INFORMATION
  Report Type: Report from Study
  Country: US (occurrence: US)
  Receive Date: 20230622
  Receipt Date: 20250421
  Transmission Date: 20250717
  Serious: Yes (Other)
  Sender: TAKEDA
  Company Number: US-TAKEDA-2021TUS075973

PATIENT
  Sex: Male

DRUGS (20)
  1. PONATINIB [Suspect]
     Active Substance: PONATINIB
     Indication: Acute lymphocytic leukaemia
     Dosage: 30 MILLIGRAM, QD
     Dates: start: 2020
  2. PONATINIB [Suspect]
     Active Substance: PONATINIB
     Dosage: 15 MILLIGRAM, QD
  3. PONATINIB [Suspect]
     Active Substance: PONATINIB
     Dosage: 15 MILLIGRAM, QD
  4. PONATINIB [Suspect]
     Active Substance: PONATINIB
     Dosage: 15 MILLIGRAM, QD
  5. PONATINIB [Suspect]
     Active Substance: PONATINIB
     Dosage: 15 MILLIGRAM, QOD
  6. PONATINIB [Suspect]
     Active Substance: PONATINIB
     Dosage: 15 MILLIGRAM, QD
  7. CITALOPRAM HYDROBROMIDE [Concomitant]
     Active Substance: CITALOPRAM HYDROBROMIDE
  8. MIRTAZAPINE [Concomitant]
     Active Substance: MIRTAZAPINE
  9. ALPRAZOLAM [Concomitant]
     Active Substance: ALPRAZOLAM
  10. BLINCYTO [Concomitant]
     Active Substance: BLINATUMOMAB
  11. FOLIC ACID [Concomitant]
     Active Substance: FOLIC ACID
  12. VITAMIN D [Concomitant]
     Active Substance: VITAMIN D NOS
  13. METOPROLOL TARTRATE [Concomitant]
     Active Substance: METOPROLOL TARTRATE
  14. ENALAPRIL MALEATE [Concomitant]
     Active Substance: ENALAPRIL MALEATE
  15. LEVOFLOXACIN [Concomitant]
     Active Substance: LEVOFLOXACIN
  16. ACYCLOVIR [Concomitant]
     Active Substance: ACYCLOVIR
  17. FLUCONAZOLE [Concomitant]
     Active Substance: FLUCONAZOLE
  18. SULFAMETHOXAZOLE AND TRIMETHOPRIM [Concomitant]
     Active Substance: SULFAMETHOXAZOLE\TRIMETHOPRIM
  19. HYDROXYZINE HYDROCHLORIDE [Concomitant]
     Active Substance: HYDROXYZINE HYDROCHLORIDE
  20. ELIQUIS [Concomitant]
     Active Substance: APIXABAN

REACTIONS (9)
  - Atrial fibrillation [Unknown]
  - Blood pressure increased [Unknown]
  - Nervousness [Unknown]
  - Heart rate increased [Unknown]
  - Product dose omission issue [Unknown]
  - Drug ineffective [Unknown]
  - Malaise [Unknown]
  - Vomiting [Unknown]
  - Fatigue [Unknown]
